FAERS Safety Report 11512975 (Version 2)
Quarter: 2015Q3

REPORT INFORMATION
  Report Type: Spontaneous
  Country: US (occurrence: US)
  Receive Date: 20150903
  Receipt Date: 20150903
  Transmission Date: 20151125
  Serious: No
  Sender: FDA-Public Use
  Company Number: US-ELI_LILLY_AND_COMPANY-US201002005305

PATIENT
  Sex: Female

DRUGS (2)
  1. HUMALOG [Suspect]
     Active Substance: INSULIN LISPRO
     Indication: DIABETES MELLITUS
     Dosage: UNK, AS NEEDED
     Dates: start: 200808
  2. LASIX [Concomitant]
     Active Substance: FUROSEMIDE

REACTIONS (17)
  - Nasopharyngitis [Recovered/Resolved]
  - Cough [Recovered/Resolved]
  - Neuropathy peripheral [Not Recovered/Not Resolved]
  - Hypoaesthesia [Not Recovered/Not Resolved]
  - Blood glucose increased [Unknown]
  - Diabetic microangiopathy [Recovered/Resolved]
  - Cough [Recovered/Resolved]
  - Unevaluable event [Unknown]
  - Peripheral arterial occlusive disease [Not Recovered/Not Resolved]
  - Nasopharyngitis [Recovered/Resolved]
  - Glycosylated haemoglobin increased [Unknown]
  - Coronary artery disease [Not Recovered/Not Resolved]
  - Blister [Not Recovered/Not Resolved]
  - Peripheral swelling [Unknown]
  - Staphylococcal infection [Not Recovered/Not Resolved]
  - Wound secretion [Not Recovered/Not Resolved]
  - Poor peripheral circulation [Unknown]

NARRATIVE: CASE EVENT DATE: 2009
